FAERS Safety Report 5278887-2 (Version None)
Quarter: 2007Q1

REPORT INFORMATION
  Report Type: 
  Country: None (occurrence: None)
  Receive Date: 20070328
  Receipt Date: 20070315
  Transmission Date: 20070707
  Serious: Yes (Hospitalization)
  Sender: FDA-Public Use
  Company Number: DE-JNJFOC-20070303424

PATIENT
  Age: 26 Year
  Sex: Male

DRUGS (17)
  1. RISPERDAL CONSTA [Suspect]
     Indication: DRUG USE FOR UNKNOWN INDICATION
     Route: 030
  2. RISPERDAL [Suspect]
     Dosage: 4-5 MG
     Route: 048
  3. RISPERDAL [Suspect]
     Route: 048
  4. RISPERDAL [Suspect]
     Route: 048
  5. RISPERDAL [Suspect]
     Route: 048
  6. RISPERDAL [Suspect]
     Indication: DRUG USE FOR UNKNOWN INDICATION
     Route: 048
  7. HALOPERIDOL [Suspect]
     Indication: PSYCHOTIC DISORDER
     Route: 048
  8. LEPONEX [Concomitant]
     Dosage: 275 - 350 MG
     Route: 048
  9. LEPONEX [Concomitant]
     Route: 048
  10. LEPONEX [Concomitant]
     Dosage: 50 - 175 MG
     Route: 048
  11. DIAZEPAM [Concomitant]
     Dosage: 37,5 - 32,5 MG
     Route: 048
  12. DIAZEPAM [Concomitant]
     Route: 048
  13. DIAZEPAM [Concomitant]
     Route: 048
  14. DIAZEPAM [Concomitant]
     Route: 048
  15. DIAZEPAM [Concomitant]
     Dosage: 15 - 25 MG
     Route: 048
  16. NEUROCIL [Concomitant]
     Route: 048
  17. XIMOVAN [Concomitant]
     Route: 048

REACTIONS (1)
  - PARKINSONISM [None]
